FAERS Safety Report 5331458-1 (Version None)
Quarter: 2007Q2

REPORT INFORMATION
  Report Type: 
  Country: None (occurrence: None)
  Receive Date: 20070522
  Receipt Date: 20070508
  Transmission Date: 20071010
  Serious: Yes (Death, Hospitalization)
  Sender: FDA-Public Use
  Company Number: US-PFIZER INC-2006151101

PATIENT
  Sex: Male
  Weight: 74.8 kg

DRUGS (2)
  1. BEXTRA [Suspect]
     Indication: PAIN
     Route: 048
     Dates: start: 20030401, end: 20040825
  2. BEXTRA [Suspect]
     Indication: ARTHRITIS

REACTIONS (2)
  - ACUTE MYOCARDIAL INFARCTION [None]
  - CARDIAC ARREST [None]
